FAERS Safety Report 7757580-8 (Version None)
Quarter: 2011Q3

REPORT INFORMATION
  Report Type: 
  Country: None (occurrence: None)
  Receive Date: 20110916
  Receipt Date: 20110907
  Transmission Date: 20111222
  Serious: Yes (Life-Threatening, Hospitalization, Other)
  Sender: FDA-Public Use
  Company Number: DE-CELGENEUS-062-50794-11083429

PATIENT
  Age: 75 Year
  Sex: Male
  Weight: 92 kg

DRUGS (7)
  1. VIDAZA [Suspect]
     Dosage: 75 MILLIGRAM/SQ. METER
     Route: 065
     Dates: start: 20080304, end: 20080310
  2. VIDAZA [Suspect]
     Dosage: 75 MILLIGRAM/SQ. METER
     Route: 065
     Dates: start: 20080121, end: 20080124
  3. SIMVASTATIN [Concomitant]
     Indication: PROPHYLAXIS
     Dosage: 20 MILLIGRAM
     Route: 065
  4. VIDAZA [Suspect]
     Route: 065
     Dates: start: 20080409
  5. DIAVAN [Concomitant]
     Dosage: 160 MILLIGRAM
     Route: 065
  6. AMLODIPINE [Concomitant]
     Dosage: 10 MILLIGRAM
     Route: 065
  7. PANTOPRAZOLE [Concomitant]
     Indication: PROPHYLAXIS
     Dosage: 40 MILLIGRAM
     Route: 065

REACTIONS (4)
  - ILEUS [None]
  - MESENTERIC ARTERY THROMBOSIS [None]
  - BRONCHOPULMONARY ASPERGILLOSIS [None]
  - LUNG INFECTION [None]
